FAERS Safety Report 8181211-9 (Version None)
Quarter: 2012Q1

REPORT INFORMATION
  Report Type: 
  Country: None (occurrence: None)
  Receive Date: 20120302
  Receipt Date: 20120225
  Transmission Date: 20120608
  Serious: Yes (Hospitalization)
  Sender: FDA-Public Use
  Company Number: DE-GLAXOSMITHKLINE-D0072737A

PATIENT
  Sex: Male
  Weight: 90 kg

DRUGS (5)
  1. ZYPREXA [Suspect]
     Dosage: 5MG SEE DOSAGE TEXT
     Route: 048
     Dates: start: 20110914, end: 20110914
  2. MIRTAZAPINE [Suspect]
     Dosage: 30MG SEE DOSAGE TEXT
     Route: 048
     Dates: start: 20110914, end: 20110914
  3. LAMOTRIGINE [Suspect]
     Dosage: 50MG SEE DOSAGE TEXT
     Route: 048
     Dates: start: 20110914, end: 20110914
  4. LORAZEPAM [Suspect]
     Dosage: 1MG SEE DOSAGE TEXT
     Route: 048
     Dates: start: 20110914, end: 20110914
  5. LITHIUM CARBONATE [Suspect]
     Dosage: 450MG UNKNOWN
     Route: 048
     Dates: start: 20110914, end: 20110914

REACTIONS (6)
  - BLOOD CREATINE PHOSPHOKINASE INCREASED [None]
  - SUICIDE ATTEMPT [None]
  - MIOSIS [None]
  - COMA [None]
  - TACHYCARDIA [None]
  - ENDOTRACHEAL INTUBATION [None]
